FAERS Safety Report 26085545 (Version 2)
Quarter: 2025Q4

REPORT INFORMATION
  Report Type: Spontaneous
  Country: JP (occurrence: JP)
  Receive Date: 20251125
  Receipt Date: 20251224
  Transmission Date: 20260117
  Serious: Yes (Death, Other)
  Sender: ROCHE
  Company Number: JP-CHUGAI-2025037747

PATIENT
  Age: 7 Decade
  Sex: Female
  Weight: 42.9 kg

DRUGS (23)
  1. CELLCEPT [Suspect]
     Active Substance: MYCOPHENOLATE MOFETIL
     Indication: Lupus nephritis
  2. CELLCEPT [Suspect]
     Active Substance: MYCOPHENOLATE MOFETIL
     Dosage: 1250 MILLIGRAM, BID
     Route: 048
     Dates: start: 20200220, end: 20200325
  3. CELLCEPT [Suspect]
     Active Substance: MYCOPHENOLATE MOFETIL
     Dosage: 750 MILLIGRAM, BID
     Route: 048
     Dates: start: 20191107, end: 20191211
  4. CELLCEPT [Suspect]
     Active Substance: MYCOPHENOLATE MOFETIL
     Dosage: 1500 MILLIGRAM, BID
     Route: 048
     Dates: start: 20200326, end: 20250107
  5. CELLCEPT [Suspect]
     Active Substance: MYCOPHENOLATE MOFETIL
     Dosage: 1000 MG, BID
     Route: 048
     Dates: start: 20250108, end: 20250617
  6. CELLCEPT [Suspect]
     Active Substance: MYCOPHENOLATE MOFETIL
     Dosage: 500 MILLIGRAM, BID
     Route: 048
     Dates: start: 20250618, end: 20250625
  7. CELLCEPT [Suspect]
     Active Substance: MYCOPHENOLATE MOFETIL
     Dosage: 500 MILLIGRAM, BID
     Route: 048
     Dates: start: 20191010, end: 20191106
  8. CELLCEPT [Suspect]
     Active Substance: MYCOPHENOLATE MOFETIL
     Dosage: 1000 MG, BID
     Route: 048
     Dates: start: 20191212, end: 20200219
  9. HYDROXYCHLOROQUINE SULFATE [Concomitant]
     Active Substance: HYDROXYCHLOROQUINE SULFATE
     Indication: Product used for unknown indication
     Dosage: UNK
  10. BENLYSTA [Concomitant]
     Active Substance: BELIMUMAB
     Dates: start: 20220927, end: 202506
  11. PREDNISOLONE [Concomitant]
     Active Substance: PREDNISOLONE
  12. PREDNISOLONE [Concomitant]
     Active Substance: PREDNISOLONE
  13. LANSOPRAZOLE [Concomitant]
     Active Substance: LANSOPRAZOLE
  14. FUROSEMIDE [Concomitant]
     Active Substance: FUROSEMIDE
  15. BENIDIPINE HYDROCHLORIDE [Concomitant]
     Active Substance: BENIDIPINE HYDROCHLORIDE
  16. IRBESARTAN [Concomitant]
     Active Substance: IRBESARTAN
  17. PRAVASTATIN SODIUM [Concomitant]
     Active Substance: PRAVASTATIN SODIUM
  18. AMLODIPINE BESYLATE [Concomitant]
     Active Substance: AMLODIPINE BESYLATE
  19. DAPAGLIFLOZIN [Concomitant]
     Active Substance: DAPAGLIFLOZIN
  20. POLAPREZINC [Concomitant]
     Active Substance: POLAPREZINC
  21. SODIUM FERROUS CITRATE [Concomitant]
     Active Substance: SODIUM FERROUS CITRATE
  22. SENNOSIDES A AND B [Concomitant]
     Active Substance: SENNOSIDES A AND B
  23. ALENDRONATE [Concomitant]
     Active Substance: ALENDRONATE SODIUM

REACTIONS (4)
  - Central nervous system lymphoma [Fatal]
  - Femoral neck fracture [Unknown]
  - Hypogammaglobulinaemia [Unknown]
  - Fall [Unknown]

NARRATIVE: CASE EVENT DATE: 20250416
